FAERS Safety Report 21910060 (Version 1)
Quarter: 2023Q1

REPORT INFORMATION
  Report Type: Spontaneous
  Country: US (occurrence: US)
  Receive Date: 20230125
  Receipt Date: 20230125
  Transmission Date: 20230418
  Serious: No
  Sender: FDA-Public Use
  Company Number: US-ALLERGAN-2201022US

PATIENT
  Age: 71 Year
  Sex: Female

DRUGS (2)
  1. BOTOX COSMETIC [Suspect]
     Active Substance: ONABOTULINUMTOXINA
     Indication: Skin wrinkling
     Dosage: UNK UNK, SINGLE
     Dates: start: 20220103, end: 20220103
  2. BENZYL ALCOHOL [Suspect]
     Active Substance: BENZYL ALCOHOL
     Indication: Product used for unknown indication

REACTIONS (4)
  - Product preparation error [Unknown]
  - Periorbital swelling [Unknown]
  - Swelling face [Unknown]
  - Hypersensitivity [Unknown]

NARRATIVE: CASE EVENT DATE: 20220103
